FAERS Safety Report 12574377 (Version 1)
Quarter: 2016Q3

REPORT INFORMATION
  Report Type: Spontaneous
  Country: CN (occurrence: CN)
  Receive Date: 20160720
  Receipt Date: 20160720
  Transmission Date: 20161109
  Serious: Yes (Hospitalization)
  Sender: FDA-Public Use
  Company Number: CN-SA-2016SA129521

PATIENT
  Age: 74 Year
  Sex: Female
  Weight: 68 kg

DRUGS (10)
  1. PANTOPRAZOLE SODIUM. [Concomitant]
     Active Substance: PANTOPRAZOLE SODIUM
     Indication: PROPHYLAXIS AGAINST GASTROINTESTINAL ULCER
     Dosage: ENTERIC-COATED CAPSULES
     Route: 048
     Dates: start: 20151208, end: 20151226
  2. GINKGO BILOBA LEAF EXTRACT [Concomitant]
     Active Substance: GINKGO BILOBA LEAF EXTRACT
     Route: 048
     Dates: start: 20151208, end: 20151230
  3. PLAVIX [Suspect]
     Active Substance: CLOPIDOGREL BISULFATE
     Indication: PLATELET DISORDER
     Route: 048
     Dates: start: 20151208, end: 20151226
  4. POLICOSANOL [Concomitant]
     Indication: LIPIDS ABNORMAL
     Route: 048
     Dates: start: 20151208, end: 20151226
  5. GINKGO BILOBA LEAF EXTRACT [Concomitant]
     Active Substance: GINKGO BILOBA LEAF EXTRACT
     Route: 048
     Dates: start: 20151208, end: 20151226
  6. GLUCOSE [Concomitant]
     Active Substance: DEXTROSE
     Route: 041
     Dates: start: 20151211, end: 20151225
  7. COZAAR [Concomitant]
     Active Substance: LOSARTAN POTASSIUM
     Indication: HYPERTENSION
     Route: 048
     Dates: start: 20151208, end: 20151226
  8. LEVOCARNITINE. [Concomitant]
     Active Substance: LEVOCARNITINE
     Route: 041
     Dates: start: 20151211, end: 20151225
  9. ALPROSTADIL. [Concomitant]
     Active Substance: ALPROSTADIL
     Route: 041
     Dates: start: 20151211, end: 20151225
  10. CLEXANE [Concomitant]
     Active Substance: ENOXAPARIN SODIUM
     Indication: COAGULOPATHY
     Route: 058
     Dates: start: 20151208, end: 20151228

REACTIONS (1)
  - Hepatic function abnormal [Recovering/Resolving]

NARRATIVE: CASE EVENT DATE: 20151225
